FAERS Safety Report 21806793 (Version 3)
Quarter: 2023Q1

REPORT INFORMATION
  Report Type: Spontaneous
  Country: TW (occurrence: TW)
  Receive Date: 20230102
  Receipt Date: 20230210
  Transmission Date: 20230418
  Serious: Yes (Hospitalization, Other)
  Sender: FDA-Public Use
  Company Number: TW-002147023-NVSC2022TW301483

PATIENT
  Age: 3 Year
  Sex: Male

DRUGS (2)
  1. KYMRIAH [Suspect]
     Active Substance: TISAGENLECLEUCEL
     Indication: Acute lymphocytic leukaemia
     Dosage: UNK, ONCE/SINGLE (0.2 TO 5.0 X 10^6 CAR-POSITIVE VIABLE T CELLS PER KG OF BODY WEIGHT)
     Route: 042
     Dates: start: 20221024
  2. KYMRIAH [Suspect]
     Active Substance: TISAGENLECLEUCEL
     Dosage: ONCE/SINGLE (FORMULATION: BAG), (DOSE: 3.1 X 10^6 TDN VIABLE TCELL/KG DETEMINATION OF CAR (BY FLOW):
     Route: 042
     Dates: start: 20221024, end: 20221024

REACTIONS (3)
  - Acute lymphocytic leukaemia recurrent [Recovered/Resolved]
  - Post-depletion B-cell recovery [Not Recovered/Not Resolved]
  - Loss of CAR T-cell persistence [Unknown]

NARRATIVE: CASE EVENT DATE: 20221221
